FAERS Safety Report 24324851 (Version 1)
Quarter: 2024Q3

REPORT INFORMATION
  Report Type: Spontaneous
  Country: CN (occurrence: CN)
  Receive Date: 20240916
  Receipt Date: 20240916
  Transmission Date: 20241017
  Serious: Yes (Hospitalization)
  Sender: PFIZER
  Company Number: CN-PFIZER INC-PV202400120044

PATIENT
  Age: 36 Year
  Sex: Female

DRUGS (4)
  1. EPIRUBICIN [Suspect]
     Active Substance: EPIRUBICIN
     Indication: Breast cancer
     Dosage: 50 MG, 1X/DAY
     Route: 041
     Dates: start: 20240809, end: 20240810
  2. EPIRUBICIN [Suspect]
     Active Substance: EPIRUBICIN
     Indication: Breast conserving surgery
     Dosage: 50 MG, 1X/DAY
     Route: 041
     Dates: start: 20240823, end: 20240824
  3. CYCLOPHOSPHAMIDE [Suspect]
     Active Substance: CYCLOPHOSPHAMIDE
     Indication: Breast cancer
     Dosage: 1 G, 1X/DAY
     Route: 041
     Dates: start: 20240809, end: 20240809
  4. CYCLOPHOSPHAMIDE [Suspect]
     Active Substance: CYCLOPHOSPHAMIDE
     Indication: Breast conserving surgery
     Dosage: 1 G, 1X/DAY
     Route: 041
     Dates: start: 20240823, end: 20240823

REACTIONS (1)
  - Liver injury [Recovering/Resolving]

NARRATIVE: CASE EVENT DATE: 20240823
